FAERS Safety Report 5957514-2 (Version None)
Quarter: 2008Q4

REPORT INFORMATION
  Report Type: 
  Country: None (occurrence: None)
  Receive Date: 20081112
  Receipt Date: 20081103
  Transmission Date: 20090506
  Serious: Yes (Other)
  Sender: FDA-Public Use
  Company Number: CHPA2008US19048

PATIENT
  Sex: Male

DRUGS (3)
  1. NICOTINE [Suspect]
     Indication: SMOKING CESSATION THERAPY
     Dosage: 21 MG; QD, TRANSDERMAL; 14 MG, QD, TRANSDERMAL; 7 MG, QD, TRANSDERMAL
     Route: 062
  2. NICOTINE [Suspect]
     Indication: SMOKING CESSATION THERAPY
     Dosage: 21 MG; QD, TRANSDERMAL; 14 MG, QD, TRANSDERMAL; 7 MG, QD, TRANSDERMAL
     Route: 062
  3. NICOTINE [Suspect]
     Indication: SMOKING CESSATION THERAPY
     Dosage: 21 MG; QD, TRANSDERMAL; 14 MG, QD, TRANSDERMAL; 7 MG, QD, TRANSDERMAL
     Route: 062

REACTIONS (1)
  - SURGERY [None]
